FAERS Safety Report 18218118 (Version 1)
Quarter: 2020Q3

REPORT INFORMATION
  Report Type: Spontaneous
  Country: US (occurrence: US)
  Receive Date: 20200831
  Receipt Date: 20200831
  Transmission Date: 20201103
  Serious: Yes (Hospitalization)
  Sender: FDA-Public Use
  Company Number: None

PATIENT
  Age: 77 Year
  Sex: Female

DRUGS (15)
  1. AZITHROMYCIN ANHYDROUS. [Concomitant]
     Active Substance: AZITHROMYCIN ANHYDROUS
  2. CLONAZEPAM. [Concomitant]
     Active Substance: CLONAZEPAM
  3. FISH OIL [Concomitant]
     Active Substance: FISH OIL
  4. ENBREL [Suspect]
     Active Substance: ETANERCEPT
     Indication: RHEUMATOID ARTHRITIS
     Route: 058
     Dates: start: 20140318
  5. MULTL VIT [Concomitant]
  6. ALENDRONATE [Concomitant]
     Active Substance: ALENDRONATE SODIUM
  7. OMEPRAZOLE. [Concomitant]
     Active Substance: OMEPRAZOLE
  8. LIDODERM [Concomitant]
     Active Substance: LIDOCAINE
  9. TRAMADOL. [Concomitant]
     Active Substance: TRAMADOL
  10. UREA. [Concomitant]
     Active Substance: UREA
  11. CALCIUM [Concomitant]
     Active Substance: CALCIUM
  12. HYDROXYCHLOR [Concomitant]
     Active Substance: HYDROXYCHLOROQUINE
  13. NIFEDIAS [Concomitant]
  14. NITROFURANTN [Concomitant]
     Active Substance: NITROFURANTOIN
  15. RESTASIS [Concomitant]
     Active Substance: CYCLOSPORINE

REACTIONS (2)
  - Therapy interrupted [None]
  - Surgery [None]
